FAERS Safety Report 15884875 (Version 1)
Quarter: 2019Q1

REPORT INFORMATION
  Report Type: Spontaneous
  Country: US (occurrence: US)
  Receive Date: 20190129
  Receipt Date: 20190129
  Transmission Date: 20190417
  Serious: Yes (Death)
  Sender: FDA-Public Use
  Company Number: US-PFIZER INC-2019038263

PATIENT
  Age: 92 Year
  Sex: Female
  Weight: 59.87 kg

DRUGS (1)
  1. IBRANCE [Suspect]
     Active Substance: PALBOCICLIB
     Indication: BREAST CANCER
     Dosage: 75 MG, CYCLIC (75MG 21 DAYS ON AND 7 OFF)

REACTIONS (1)
  - Neoplasm progression [Fatal]
